APPROVED DRUG PRODUCT: NEFAZODONE HYDROCHLORIDE
Active Ingredient: NEFAZODONE HYDROCHLORIDE
Strength: 200MG
Dosage Form/Route: TABLET;ORAL
Application: A076409 | Product #004
Applicant: SUN PHARMACEUTICAL INDUSTRIES LTD
Approved: Sep 16, 2003 | RLD: No | RS: No | Type: DISCN